FAERS Safety Report 7973332-8 (Version None)
Quarter: 2011Q4

REPORT INFORMATION
  Report Type: 
  Country: None (occurrence: None)
  Receive Date: 20111213
  Receipt Date: 20110531
  Transmission Date: 20120403
  Serious: No
  Sender: FDA-Public Use
  Company Number: US-AMGEN-USASP2011028432

PATIENT
  Age: 20 Year
  Sex: Male

DRUGS (2)
  1. ARANESP [Suspect]
     Indication: HAEMOPHILIA
     Dosage: 50 MUG, UNK
  2. ANTIHEMOPHILIC FACTOR (HUMAN) [Concomitant]

REACTIONS (1)
  - WRONG DRUG ADMINISTERED [None]
